FAERS Safety Report 8967685 (Version 2)
Quarter: 2013Q1

REPORT INFORMATION
  Report Type: Spontaneous
  Country: US (occurrence: None)
  Receive Date: 20121206
  Receipt Date: 20121214
  Transmission Date: 20140127
  Serious: Yes (Other)
  Sender: FDA-Public Use
  Company Number: 2012P1065747

PATIENT
  Age: 4 Year
  Sex: Male
  Weight: 17.7 kg

DRUGS (7)
  1. CLARAVIS [Suspect]
     Route: 048
     Dates: start: 20120801, end: 20121110
  2. ZOFRAN [Concomitant]
  3. ATIVAN [Concomitant]
  4. POTASSIUM [Concomitant]
  5. MEGACE [Concomitant]
  6. MAGNESIUM [Concomitant]
  7. NEURONTIN [Concomitant]

REACTIONS (2)
  - Disease progression [None]
  - Brain neoplasm [None]
